FAERS Safety Report 9780648 (Version 2)
Quarter: 2013Q4

REPORT INFORMATION
  Report Type: Spontaneous
  Country: JP (occurrence: JP)
  Receive Date: 20131224
  Receipt Date: 20131230
  Transmission Date: 20140711
  Serious: No
  Sender: FDA-Public Use
  Company Number: JP-JNJFOC-20131211415

PATIENT
  Age: 78 Year
  Sex: Male

DRUGS (6)
  1. XARELTO [Suspect]
     Indication: ATRIAL FIBRILLATION
     Route: 048
     Dates: start: 201311
  2. MAINTATE [Concomitant]
     Route: 048
  3. IRBESARTAN [Concomitant]
     Route: 048
  4. ITOROL [Concomitant]
     Route: 048
  5. AMLODIPINE [Concomitant]
     Route: 048
  6. LANIRAPID [Concomitant]
     Route: 048

REACTIONS (2)
  - Epistaxis [Recovered/Resolved]
  - Muscle spasms [Recovered/Resolved]
